FAERS Safety Report 12517439 (Version 1)
Quarter: 2016Q2

REPORT INFORMATION
  Report Type: Spontaneous
  Country: US (occurrence: US)
  Receive Date: 20160630
  Receipt Date: 20160630
  Transmission Date: 20160815
  Serious: No
  Sender: FDA-Public Use
  Company Number: US-BAYER-2016-127225

PATIENT
  Age: 77 Year
  Sex: Male
  Weight: 93.42 kg

DRUGS (1)
  1. MIRALAX [Suspect]
     Active Substance: POLYETHYLENE GLYCOL 3350
     Indication: COLONOSCOPY
     Dosage: UNK (ABOUT TO TO TAKE 238G OF MIRALAX MIXED WITH 2QUARTS OF GATORADE)
     Route: 048
     Dates: start: 2013

REACTIONS (2)
  - Product use issue [None]
  - Circumstance or information capable of leading to medication error [None]

NARRATIVE: CASE EVENT DATE: 201606
